FAERS Safety Report 13803567 (Version 1)
Quarter: 2017Q3

REPORT INFORMATION
  Report Type: Spontaneous
  Country: US (occurrence: US)
  Receive Date: 20170728
  Receipt Date: 20170728
  Transmission Date: 20171127
  Serious: No
  Sender: FDA-Public Use
  Company Number: US-TEVA-782567ACC

PATIENT

DRUGS (1)
  1. CARTIA XT [Suspect]
     Active Substance: DILTIAZEM HYDROCHLORIDE
     Dates: start: 20170524

REACTIONS (4)
  - Abdominal pain upper [Recovered/Resolved]
  - Therapeutic product ineffective [Unknown]
  - Headache [Recovered/Resolved]
  - Product substitution issue [Unknown]
